FAERS Safety Report 4738593-7 (Version None)
Quarter: 2005Q3

REPORT INFORMATION
  Report Type: 
  Country: None (occurrence: None)
  Receive Date: 20050803
  Receipt Date: 20050712
  Transmission Date: 20060218
  Serious: Yes (Other)
  Sender: FDA-Public Use
  Company Number: USA0506101226

PATIENT
  Age: 51 Year
  Sex: Female

DRUGS (2)
  1. ZYPREXA [Suspect]
     Indication: NERVOUS SYSTEM DISORDER
     Dosage: 1.25 MG DAY
     Dates: start: 20050501
  2. SEROQUEL [Concomitant]

REACTIONS (10)
  - ASTHENIA [None]
  - FEELING ABNORMAL [None]
  - INTESTINAL OBSTRUCTION [None]
  - LOW DENSITY LIPOPROTEIN INCREASED [None]
  - MULTI-ORGAN DISORDER [None]
  - NIGHTMARE [None]
  - NUCHAL RIGIDITY [None]
  - PARANOIA [None]
  - PLATELET COUNT INCREASED [None]
  - VAGINAL HAEMORRHAGE [None]
